FAERS Safety Report 19363663 (Version 1)
Quarter: 2021Q2

REPORT INFORMATION
  Report Type: Report from Study
  Country: US (occurrence: US)
  Receive Date: 20210602
  Receipt Date: 20210602
  Transmission Date: 20210717
  Serious: Yes (Hospitalization, Other)
  Sender: FDA-Public Use
  Company Number: NVSC2021US117881

PATIENT
  Age: 67 Year
  Sex: Female
  Weight: 68.2 kg

DRUGS (2)
  1. TAFINLAR [Suspect]
     Active Substance: DABRAFENIB MESYLATE
     Indication: BRAF GENE MUTATION
     Dosage: 2 DF, QD
     Route: 048
     Dates: start: 20210223
  2. MEKINIST [Suspect]
     Active Substance: TRAMETINIB DIMETHYL SULFOXIDE
     Indication: BRAF GENE MUTATION
     Dosage: 2 MG, QD
     Route: 048
     Dates: start: 20210223

REACTIONS (8)
  - Dyspnoea [Recovering/Resolving]
  - Pain [Recovering/Resolving]
  - Tracheal stenosis [Unknown]
  - Jugular vein thrombosis [Unknown]
  - Stridor [Unknown]
  - Laryngitis [Recovering/Resolving]
  - Pharyngeal swelling [Recovering/Resolving]
  - Laryngeal oedema [Unknown]

NARRATIVE: CASE EVENT DATE: 20210508
